FAERS Safety Report 12922089 (Version 2)
Quarter: 2016Q4

REPORT INFORMATION
  Report Type: Spontaneous
  Country: DE (occurrence: DE)
  Receive Date: 20161108
  Receipt Date: 20161121
  Transmission Date: 20170207
  Serious: Yes (Other)
  Sender: FDA-Public Use
  Company Number: DE-NORTHSTAR HEALTHCARE HOLDINGS-DE-2016NSR001871

PATIENT
  Sex: Male

DRUGS (2)
  1. TRAMADOL HYDROCHLORIDE. [Suspect]
     Active Substance: TRAMADOL HYDROCHLORIDE
     Indication: BACK PAIN
     Dosage: 450 MG (SOLUTION), QD
  2. TRAMADOL HYDROCHLORIDE. [Suspect]
     Active Substance: TRAMADOL HYDROCHLORIDE
     Dosage: INCREASED BY ONE-THIRD

REACTIONS (7)
  - Loss of consciousness [Recovered/Resolved]
  - Overdose [Unknown]
  - Road traffic accident [Unknown]
  - Tremor [Unknown]
  - Seizure [Unknown]
  - Eye movement disorder [Unknown]
  - Disorientation [Unknown]
